FAERS Safety Report 12953627 (Version 1)
Quarter: 2016Q4

REPORT INFORMATION
  Report Type: Report from Study
  Country: None (occurrence: US)
  Receive Date: 20161117
  Receipt Date: 20161117
  Transmission Date: 20170207
  Serious: Yes (Hospitalization)
  Sender: FDA-Public Use
  Company Number: US-ABBVIE-16P-163-1780402-00

PATIENT
  Age: 74 Year
  Sex: Female
  Weight: 49.03 kg

DRUGS (5)
  1. AUGMENTIN [Suspect]
     Active Substance: AMOXICILLIN\CLAVULANATE POTASSIUM
     Indication: INFECTED BITE
  2. OFEV [Concomitant]
     Active Substance: NINTEDANIB
     Indication: PRODUCT USED FOR UNKNOWN INDICATION
  3. HYDROXYCHLOROQUINE [Concomitant]
     Active Substance: HYDROXYCHLOROQUINE
     Indication: PRODUCT USED FOR UNKNOWN INDICATION
  4. CREON [Suspect]
     Active Substance: PANCRELIPASE AMYLASE\PANCRELIPASE LIPASE\PANCRELIPASE PROTEASE
     Indication: PANCREATIC INSUFFICIENCY
     Dosage: 2 CAPSULES WITH MEALS
     Route: 048
     Dates: start: 2013
  5. AUGMENTIN [Suspect]
     Active Substance: AMOXICILLIN\CLAVULANATE POTASSIUM
     Indication: ANIMAL BITE
     Route: 065
     Dates: start: 20160903, end: 20160903

REACTIONS (7)
  - Clostridium difficile infection [Recovered/Resolved]
  - Diarrhoea [Recovering/Resolving]
  - Infected bite [Recovered/Resolved]
  - Dehydration [Recovered/Resolved]
  - Dizziness [Not Recovered/Not Resolved]
  - Animal bite [Recovered/Resolved]
  - Vomiting [Recovered/Resolved]

NARRATIVE: CASE EVENT DATE: 201609
